FAERS Safety Report 25810088 (Version 2)
Quarter: 2025Q3

REPORT INFORMATION
  Report Type: Spontaneous
  Country: US (occurrence: US)
  Receive Date: 20250917
  Receipt Date: 20250925
  Transmission Date: 20251020
  Serious: Yes (Other)
  Sender: ROCHE
  Company Number: US-ROCHE-10000388413

PATIENT
  Age: 32 Year
  Sex: Female

DRUGS (4)
  1. XOLAIR [Suspect]
     Active Substance: OMALIZUMAB
     Indication: Asthma
     Dosage: 150 MG, PATIENT LAST 2 XOLAIR INJECTIONS WERE YESTERDAY ON 18-SEP-2025 AND ON 04-SEP-2025.
     Route: 058
     Dates: start: 202310
  2. XOLAIR [Suspect]
     Active Substance: OMALIZUMAB
     Indication: Urticaria chronic
  3. LUPRON ADULT 1 MONTH DEPOT [Concomitant]
  4. DUPIXENT [Concomitant]
     Active Substance: DUPILUMAB

REACTIONS (2)
  - Anaphylactic reaction [Unknown]
  - Asthma [Unknown]

NARRATIVE: CASE EVENT DATE: 20250907
